FAERS Safety Report 13672228 (Version 1)
Quarter: 2017Q2

REPORT INFORMATION
  Report Type: Spontaneous
  Country: US (occurrence: US)
  Receive Date: 20170620
  Receipt Date: 20170620
  Transmission Date: 20170830
  Serious: Yes (Life-Threatening, Other)
  Sender: FDA-Public Use
  Company Number: None

PATIENT
  Age: 42 Year
  Sex: Female

DRUGS (3)
  1. METHIMAZOLE. [Concomitant]
     Active Substance: METHIMAZOLE
  2. ATIVAN [Suspect]
     Active Substance: LORAZEPAM
     Indication: SHIFT WORK DISORDER
     Route: 048
     Dates: start: 20090501, end: 20151218
  3. GABAPENTIN. [Concomitant]
     Active Substance: GABAPENTIN

REACTIONS (24)
  - Gastrointestinal disorder [None]
  - Choking sensation [None]
  - Head discomfort [None]
  - Dizziness [None]
  - Withdrawal syndrome [None]
  - Muscle tightness [None]
  - Paraesthesia [None]
  - Heart rate increased [None]
  - Insomnia [None]
  - Nervous system disorder [None]
  - Sensory disturbance [None]
  - Intentional product use issue [None]
  - Impaired work ability [None]
  - Nerve injury [None]
  - Bone pain [None]
  - Tinnitus [None]
  - Thyroid disorder [None]
  - Discomfort [None]
  - Gait disturbance [None]
  - Malaise [None]
  - Vulvovaginal burning sensation [None]
  - Incorrect drug administration duration [None]
  - Akathisia [None]
  - Feeling abnormal [None]
